FAERS Safety Report 8168415-6 (Version None)
Quarter: 2012Q1

REPORT INFORMATION
  Report Type: 
  Country: None (occurrence: None)
  Receive Date: 20120227
  Receipt Date: 20120222
  Transmission Date: 20120608
  Serious: Yes (Other)
  Sender: FDA-Public Use
  Company Number: US-PFIZER INC-2012047362

PATIENT
  Sex: Female
  Weight: 83 kg

DRUGS (7)
  1. LOVASTATIN [Concomitant]
     Indication: BLOOD CHOLESTEROL INCREASED
     Dosage: UNK
  2. CHANTIX [Suspect]
     Indication: SMOKING CESSATION THERAPY
     Dosage: 0.5 MG, 1X/DAY
     Route: 048
     Dates: start: 20120114, end: 20120101
  3. AZITHROMYCIN [Suspect]
     Indication: BRONCHITIS
     Dosage: UNK
     Dates: end: 20120101
  4. CHANTIX [Suspect]
     Dosage: UNK
     Route: 048
     Dates: start: 20120101, end: 20120124
  5. HYDROCHLOROTHIAZIDE [Concomitant]
     Dosage: UNK
  6. OXYBUTYNIN [Concomitant]
     Dosage: UNK
  7. ENALAPRIL [Concomitant]
     Dosage: UNK

REACTIONS (3)
  - SINUS DISORDER [None]
  - MALAISE [None]
  - EYE SWELLING [None]
